FAERS Safety Report 7071713-0 (Version None)
Quarter: 2010Q4

REPORT INFORMATION
  Report Type: 
  Country: None (occurrence: None)
  Receive Date: 20101029
  Receipt Date: 20091012
  Transmission Date: 20110411
  Serious: No
  Sender: FDA-Public Use
  Company Number: A0811407A

PATIENT
  Age: 52 Year
  Sex: Female

DRUGS (10)
  1. ADVAIR DISKUS 100/50 [Suspect]
     Indication: WHEEZING
     Dosage: 1PUFF TWICE PER DAY
     Route: 055
     Dates: start: 20091001, end: 20091011
  2. PREDNISONE [Concomitant]
  3. VENTOLIN HFA [Concomitant]
  4. SINGULAIR [Concomitant]
  5. ALBUTEROL [Concomitant]
  6. LIPITOR [Concomitant]
  7. LEXAPRO [Concomitant]
  8. PROCARDIA XL [Concomitant]
  9. ATIVAN [Concomitant]
  10. OXYGEN [Concomitant]

REACTIONS (3)
  - DRUG INEFFECTIVE [None]
  - EMOTIONAL DISTRESS [None]
  - WHEEZING [None]
